FAERS Safety Report 7682701-5 (Version None)
Quarter: 2011Q3

REPORT INFORMATION
  Report Type: 
  Country: None (occurrence: None)
  Receive Date: 20110810
  Receipt Date: 20110801
  Transmission Date: 20111222
  Serious: Yes (Hospitalization)
  Sender: FDA-Public Use
  Company Number: 11-262

PATIENT
  Age: 63 Year
  Sex: Male

DRUGS (12)
  1. ENOXAPARIN SODIUM [Concomitant]
  2. CYCLIZINE [Concomitant]
  3. FENTANYL [Concomitant]
  4. MOVIPREP [Concomitant]
  5. GENATOSAN MULTIVITAMINS [Concomitant]
  6. ACETAMINOPHEN [Concomitant]
  7. IBUPROFEN [Suspect]
     Indication: BACK PAIN
     Dates: start: 20100514
  8. LANSOPRAZOLE [Concomitant]
  9. OXYCODONE HCL [Concomitant]
  10. PREDNISONE [Suspect]
     Indication: PROSTATE CANCER
     Dosage: 5 MG (2X/DAY)
     Dates: start: 20090905
  11. SUNITINIB MALATE [Suspect]
     Indication: PROSTATE CANCER
     Dosage: 25 MG
     Route: 048
  12. AOLADEX [Concomitant]

REACTIONS (1)
  - VOMITING [None]
